FAERS Safety Report 10265324 (Version 1)
Quarter: 2014Q2

REPORT INFORMATION
  Report Type: Spontaneous
  Country: AU (occurrence: AU)
  Receive Date: 20140627
  Receipt Date: 20140627
  Transmission Date: 20141212
  Serious: Yes (Hospitalization)
  Sender: FDA-Public Use
  Company Number: AU-ABBVIE-14K-008-1251391-00

PATIENT
  Sex: Male

DRUGS (1)
  1. LUCRIN [Suspect]
     Indication: PRODUCT USED FOR UNKNOWN INDICATION
     Dates: start: 20130114

REACTIONS (6)
  - Stent malfunction [Unknown]
  - Radiation skin injury [Unknown]
  - Nerve injury [Unknown]
  - Pelvic floor muscle weakness [Not Recovered/Not Resolved]
  - Incontinence [Unknown]
  - Activities of daily living impaired [Unknown]
